FAERS Safety Report 8614545-1 (Version None)
Quarter: 2012Q3

REPORT INFORMATION
  Report Type: 
  Country: None (occurrence: None)
  Receive Date: 20120823
  Receipt Date: 20120820
  Transmission Date: 20120928
  Serious: Yes (Hospitalization)
  Sender: FDA-Public Use
  Company Number: PHEH2012US014879

PATIENT
  Age: 6 Month

DRUGS (1)
  1. AFINITOR [Suspect]

REACTIONS (1)
  - PNEUMONITIS [None]
